FAERS Safety Report 8784805 (Version 1)
Quarter: 2012Q4

REPORT INFORMATION
  Report Type: Spontaneous
  Country: FR (occurrence: None)
  Receive Date: 20120831
  Receipt Date: 20120831
  Transmission Date: 20130627
  Serious: Yes (Life-Threatening, Hospitalization)
  Sender: FDA-Public Use
  Company Number: DSA_59088_2012

PATIENT
  Age: 76 Year
  Sex: Male

DRUGS (10)
  1. MONO-TILDIEM [Suspect]
     Indication: ATRIAL FIBRILLATION
     Route: 048
     Dates: start: 20120724, end: 20120730
  2. REMINYL [Concomitant]
  3. PREVISCAN [Concomitant]
  4. FUROSEMIDE [Concomitant]
  5. DISCOTRINE [Concomitant]
  6. CANDESARTAN CILEXETIL [Concomitant]
  7. FORADIL [Concomitant]
  8. SPIRIVA [Concomitant]
  9. PARIET [Concomitant]
  10. DIFFU K [Concomitant]

REACTIONS (7)
  - Anaphylactic shock [None]
  - Urticaria [None]
  - Face oedema [None]
  - Hypotension [None]
  - Toxic skin eruption [None]
  - Rash maculo-papular [None]
  - Acute generalised exanthematous pustulosis [None]
